FAERS Safety Report 13608766 (Version 1)
Quarter: 2017Q2

REPORT INFORMATION
  Report Type: Report from Study
  Country: None (occurrence: AR)
  Receive Date: 20170602
  Receipt Date: 20170602
  Transmission Date: 20170830
  Serious: Yes (Other)
  Sender: FDA-Public Use
  Company Number: AR-ABBVIE-17K-007-1995222-00

PATIENT
  Age: 68 Year
  Sex: Female

DRUGS (1)
  1. HUMIRA [Suspect]
     Active Substance: ADALIMUMAB
     Indication: RHEUMATOID ARTHRITIS
     Route: 058
     Dates: start: 20170518

REACTIONS (3)
  - Retinal vascular thrombosis [Unknown]
  - Blindness unilateral [Recovering/Resolving]
  - Retinal vascular occlusion [Unknown]

NARRATIVE: CASE EVENT DATE: 20170520
